FAERS Safety Report 18314808 (Version 1)
Quarter: 2020Q3

REPORT INFORMATION
  Report Type: Spontaneous
  Country: PL (occurrence: PL)
  Receive Date: 20200925
  Receipt Date: 20200925
  Transmission Date: 20201103
  Serious: Yes (Other)
  Sender: FDA-Public Use
  Company Number: NVSC2020PL258842

PATIENT
  Age: 70 Year
  Sex: Female
  Weight: 40 kg

DRUGS (1)
  1. METHOTREXAT?EBEWE [Suspect]
     Active Substance: METHOTREXATE SODIUM
     Indication: LIP AND/OR ORAL CAVITY CANCER
     Dosage: 56 UNK
     Route: 042
     Dates: start: 20200219, end: 20200219

REACTIONS (1)
  - Neutropenia [Unknown]

NARRATIVE: CASE EVENT DATE: 20200225
